FAERS Safety Report 12911454 (Version 5)
Quarter: 2017Q2

REPORT INFORMATION
  Report Type: Spontaneous
  Country: JP (occurrence: JP)
  Receive Date: 20161104
  Receipt Date: 20170514
  Transmission Date: 20170830
  Serious: Yes (Life-Threatening, Hospitalization, Other)
  Sender: FDA-Public Use
  Company Number: JP-BRISTOL-MYERS SQUIBB COMPANY-BMS-2016-092332

PATIENT
  Age: 63 Year
  Sex: Female
  Weight: 46.5 kg

DRUGS (3)
  1. YERVOY [Suspect]
     Active Substance: IPILIMUMAB
     Indication: OVARIAN CANCER
     Dosage: 10 MG, UNK
     Route: 042
     Dates: start: 201604
  2. NATURAL KILLER CELLS [Concomitant]
     Indication: PRODUCT USED FOR UNKNOWN INDICATION
     Dosage: UNK
     Route: 065
  3. OPDIVO [Suspect]
     Active Substance: NIVOLUMAB
     Indication: PRODUCT USED FOR UNKNOWN INDICATION
     Dosage: UNK
     Route: 065
     Dates: start: 201604

REACTIONS (7)
  - Lymphocytic hypophysitis [Recovered/Resolved]
  - Pneumonia [Recovered/Resolved]
  - Malignant neoplasm progression [Unknown]
  - Eosinophil count increased [Recovered/Resolved]
  - Adrenal insufficiency [Unknown]
  - Product use in unapproved indication [Unknown]
  - Infection [Unknown]

NARRATIVE: CASE EVENT DATE: 201610
